FAERS Safety Report 5656190-6 (Version None)
Quarter: 2008Q1

REPORT INFORMATION
  Report Type: 
  Country: None (occurrence: None)
  Receive Date: 20080305
  Receipt Date: 20080221
  Transmission Date: 20080703
  Serious: Yes (Other)
  Sender: FDA-Public Use
  Company Number: CIP08000298

PATIENT
  Age: 69 Year
  Sex: Female

DRUGS (6)
  1. RISEDRONATE SODIUM [Suspect]
     Indication: OSTEOPOROSIS
     Dosage: 2.5 MG DAILY, ORAL
     Route: 048
     Dates: start: 20070111
  2. OPALMON (LIMAPROST) [Concomitant]
  3. E C DOPAL (LEVODOPA, BENSERAZIDE HYDROCHLORIDE) [Concomitant]
  4. SELEGILINE HCL [Concomitant]
  5. CONIEL (BENIDIPINE HYDROCHLORIDE) [Concomitant]
  6. ISOSORBIDE MONONITRATE [Concomitant]

REACTIONS (1)
  - HYPOKALAEMIA [None]
